FAERS Safety Report 6464639-4 (Version None)
Quarter: 2009Q4

REPORT INFORMATION
  Report Type: 
  Country: None (occurrence: None)
  Receive Date: 20091118
  Receipt Date: 20090527
  Transmission Date: 20100525
  Serious: Yes (Hospitalization)
  Sender: FDA-Public Use
  Company Number: 2009BI012744

PATIENT
  Sex: Female
  Weight: 70.3075 kg

DRUGS (9)
  1. TYSABRI [Suspect]
     Indication: MULTIPLE SCLEROSIS
     Dosage: 300 MG; QM; IV
     Route: 042
     Dates: start: 20080725
  2. PROVIGIL [Concomitant]
  3. ZANAFLEX [Concomitant]
  4. DITROPAN [Concomitant]
  5. NEXIUM [Concomitant]
  6. ZOCOR [Concomitant]
  7. CENTRUM [Concomitant]
  8. AVONEX [Concomitant]
  9. AVONEX [Concomitant]

REACTIONS (4)
  - FEMALE STERILISATION [None]
  - SCOTOMA [None]
  - URINARY TRACT INFECTION [None]
  - VISION BLURRED [None]
